FAERS Safety Report 7273580-9 (Version None)
Quarter: 2011Q1

REPORT INFORMATION
  Report Type: 
  Country: None (occurrence: None)
  Receive Date: 20110203
  Receipt Date: 20100924
  Transmission Date: 20110831
  Serious: No
  Sender: FDA-Public Use
  Company Number: US-ABBOTT-10P-163-0674232-00

PATIENT
  Age: 78 Year
  Sex: Female

DRUGS (7)
  1. CALCIUM [Concomitant]
     Indication: OSTEOPENIA
  2. SYNTHROID [Suspect]
     Indication: PRODUCT USED FOR UNKNOWN INDICATION
     Dosage: FIRST THING IN AM
     Route: 048
  3. PEPCID [Concomitant]
     Indication: PRODUCT USED FOR UNKNOWN INDICATION
     Dosage: IN AM AND HOUR OF SLEEP
     Route: 048
  4. VITAMIN E [Concomitant]
     Indication: PRODUCT USED FOR UNKNOWN INDICATION
  5. VITAMIN A [Concomitant]
     Indication: PRODUCT USED FOR UNKNOWN INDICATION
  6. VITAMIN D [Concomitant]
     Indication: PRODUCT USED FOR UNKNOWN INDICATION
  7. MULTI-VITAMIN [Concomitant]
     Indication: PRODUCT USED FOR UNKNOWN INDICATION

REACTIONS (4)
  - OSTEOPENIA [None]
  - DIARRHOEA [None]
  - COELIAC DISEASE [None]
  - ABDOMINAL PAIN [None]
